FAERS Safety Report 8231867-7 (Version None)
Quarter: 2012Q1

REPORT INFORMATION
  Report Type: 
  Country: None (occurrence: None)
  Receive Date: 20120323
  Receipt Date: 20120320
  Transmission Date: 20120608
  Serious: Yes (Other)
  Sender: FDA-Public Use
  Company Number: GB-BAYER-2012-024016

PATIENT
  Age: 46 Year
  Sex: Female
  Weight: 51 kg

DRUGS (3)
  1. CLOTRIMAZOLE [Suspect]
     Dosage: UNK
     Route: 048
     Dates: start: 20120307, end: 20120311
  2. BETASERON [Concomitant]
  3. CLOTRIMAZOLE [Suspect]
     Dosage: UNK
     Dates: start: 20120307, end: 20120311

REACTIONS (1)
  - GENITAL HAEMORRHAGE [None]
